FAERS Safety Report 10286740 (Version 2)
Quarter: 2014Q3

REPORT INFORMATION
  Report Type: Spontaneous
  Country: IT (occurrence: IT)
  Receive Date: 20140709
  Receipt Date: 20140709
  Transmission Date: 20150326
  Serious: Yes (Life-Threatening)
  Sender: FDA-Public Use
  Company Number: IT-SA-MOZO-1000813

PATIENT
  Age: 50 Year
  Sex: Female
  Weight: 55 kg

DRUGS (2)
  1. LENOGRASTIM [Suspect]
     Active Substance: LENOGRASTIM
     Indication: HAEMATOPOIETIC STEM CELL MOBILISATION
     Dosage: 2 DF, QD
     Route: 059
     Dates: start: 20130125, end: 20130129
  2. PLERIXAFOR [Suspect]
     Active Substance: PLERIXAFOR
     Indication: HAEMATOPOIETIC STEM CELL MOBILISATION
     Dosage: 13 MCG, UNK
     Route: 059
     Dates: start: 20130129, end: 20130129

REACTIONS (1)
  - Splenic rupture [Recovered/Resolved with Sequelae]

NARRATIVE: CASE EVENT DATE: 20130129
